FAERS Safety Report 12458827 (Version 1)
Quarter: 2016Q2

REPORT INFORMATION
  Report Type: Spontaneous
  Country: US (occurrence: US)
  Receive Date: 20160613
  Receipt Date: 20160613
  Transmission Date: 20160815
  Serious: Yes (Other)
  Sender: FDA-Public Use
  Company Number: US-GLENMARK PHARMACEUTICALS INC, USA.-2016GMK023164

PATIENT
  Sex: Female

DRUGS (4)
  1. GENTAMICIN. [Suspect]
     Active Substance: GENTAMICIN
     Indication: SEPSIS
     Dosage: 5 MG/KG, EVERY 48 HOURS
     Route: 042
  2. HYDROCORTISONE BUTYRATE. [Suspect]
     Active Substance: HYDROCORTISONE BUTYRATE
     Indication: PRODUCT USED FOR UNKNOWN INDICATION
     Dosage: 0.25 MG/KG, EVERY 6 HOURS
     Route: 042
  3. VECURONIUM BROMIDE. [Suspect]
     Active Substance: VECURONIUM BROMIDE
     Indication: AGITATION
     Dosage: 0.1 MG/KG/HOUR
  4. AMPICILLIN [Concomitant]
     Active Substance: AMPICILLIN
     Indication: SEPSIS
     Dosage: 100 MG/KG, EVERY 12 HOURS
     Route: 042

REACTIONS (3)
  - Toxicity to various agents [Unknown]
  - Acute kidney injury [Not Recovered/Not Resolved]
  - Neuromuscular blockade [Not Recovered/Not Resolved]
